FAERS Safety Report 4860500-7 (Version None)
Quarter: 2005Q4

REPORT INFORMATION
  Report Type: 
  Country: None (occurrence: None)
  Receive Date: 20051219
  Receipt Date: 20051212
  Transmission Date: 20060501
  Serious: Yes (Other)
  Sender: FDA-Public Use
  Company Number: GB-AVENTIS-200520994GDDC

PATIENT
  Sex: Female

DRUGS (2)
  1. LANTUS [Suspect]
     Route: 058
  2. OPTIPEN (INSULIN PUMP) [Suspect]

REACTIONS (3)
  - FOOT FRACTURE [None]
  - OSTEOPOROSIS [None]
  - SPINAL COMPRESSION FRACTURE [None]
